FAERS Safety Report 5142858-7 (Version None)
Quarter: 2006Q4

REPORT INFORMATION
  Report Type: 
  Country: None (occurrence: None)
  Receive Date: 20061102
  Receipt Date: 20060531
  Transmission Date: 20070319
  Serious: Yes (Hospitalization)
  Sender: FDA-Public Use
  Company Number: DE-ABBOTT-06P-062-0334881-00

PATIENT
  Sex: Male
  Weight: 80 kg

DRUGS (9)
  1. HUMIRA [Suspect]
     Indication: RHEUMATOID ARTHRITIS
     Route: 058
     Dates: start: 20050916, end: 20060201
  2. PIROXICAM [Suspect]
     Indication: OSTEOARTHRITIS
     Route: 048
     Dates: start: 20060217, end: 20060310
  3. PIROXICAM [Suspect]
     Indication: INFLAMMATION
  4. PIROXICAM [Suspect]
     Indication: RHEUMATOID ARTHRITIS
  5. CORTICOSTEROIDS [Suspect]
     Indication: RHEUMATOID ARTHRITIS
     Route: 048
  6. METHOTREXATE SODIUM [Concomitant]
     Indication: RHEUMATOID ARTHRITIS
     Dates: start: 20050501, end: 20060301
  7. RISEDRONATE SODIUM [Concomitant]
     Indication: OSTEOPOROSIS
     Dates: start: 20040601
  8. CALCIUM WITH VITAMIN D [Concomitant]
     Indication: DRUG USE FOR UNKNOWN INDICATION
     Dates: start: 20040601
  9. PREDNISOLONE [Concomitant]
     Indication: DRUG USE FOR UNKNOWN INDICATION
     Dates: start: 19990101

REACTIONS (2)
  - GASTRIC PERFORATION [None]
  - IMPAIRED HEALING [None]
